FAERS Safety Report 25182832 (Version 1)
Quarter: 2025Q2

REPORT INFORMATION
  Report Type: Spontaneous
  Country: PK (occurrence: PK)
  Receive Date: 20250410
  Receipt Date: 20250410
  Transmission Date: 20250716
  Serious: Yes (Death, Other)
  Sender: MARKSANS
  Company Number: PK-MARKSANS PHARMA LIMITED-MPL202500033

PATIENT

DRUGS (4)
  1. ACETAMINOPHEN [Suspect]
     Active Substance: ACETAMINOPHEN
     Indication: Pain management
     Route: 048
  2. TRAMADOL [Suspect]
     Active Substance: TRAMADOL
     Indication: Pain management
     Route: 048
  3. ETORICOXIB [Suspect]
     Active Substance: ETORICOXIB
     Indication: Pain management
     Route: 048
  4. ASPIRIN [Concomitant]
     Active Substance: ASPIRIN
     Indication: Product used for unknown indication
     Route: 065

REACTIONS (1)
  - Pulmonary embolism [Fatal]
